FAERS Safety Report 6908209-X (Version None)
Quarter: 2010Q3

REPORT INFORMATION
  Report Type: 
  Country: None (occurrence: None)
  Receive Date: 20100708
  Receipt Date: 20090417
  Transmission Date: 20110219
  Serious: Yes (Other)
  Sender: FDA-Public Use
  Company Number: 2008002011

PATIENT
  Age: 62 Year
  Sex: Female
  Weight: 57.6 kg

DRUGS (6)
  1. CHANTIX [Suspect]
     Indication: SMOKING CESSATION THERAPY
     Dates: start: 20070217
  2. SPIRIVA [Suspect]
     Indication: ASTHMA
     Dates: start: 20070101
  3. ADVAIR DISKUS 100/50 [Concomitant]
  4. MONTELUKAST SODIUM [Concomitant]
  5. WELLBUTRIN [Concomitant]
  6. TERIPARATIDE (TERIPARATIDE) [Concomitant]

REACTIONS (6)
  - ABNORMAL DREAMS [None]
  - DRY EYE [None]
  - EYE IRRITATION [None]
  - EYE PAIN [None]
  - NAUSEA [None]
  - SLEEP DISORDER [None]
